FAERS Safety Report 6230246-1 (Version None)
Quarter: 2009Q2

REPORT INFORMATION
  Report Type: 
  Country: None (occurrence: None)
  Receive Date: 20090615
  Receipt Date: 20090602
  Transmission Date: 20091009
  Serious: Yes (Hospitalization)
  Sender: FDA-Public Use
  Company Number: SE-B.I. PHARMACEUTICALS,INC./RIDGEFIELD-2008-DE-05579DE

PATIENT
  Sex: Male
  Weight: 98 kg

DRUGS (1)
  1. TELMISARTAN+AMLODIPINE [Suspect]
     Indication: HYPERTENSION
     Dosage: RT: 80/5 MG
     Route: 048

REACTIONS (6)
  - CHEST DISCOMFORT [None]
  - DYSPNOEA [None]
  - HYPOTENSION [None]
  - HYPOTONIA [None]
  - PALLOR [None]
  - SWELLING [None]
